FAERS Safety Report 14284759 (Version 2)
Quarter: 2018Q3

REPORT INFORMATION
  Report Type: Spontaneous
  Country: AU (occurrence: AU)
  Receive Date: 20171214
  Receipt Date: 20180907
  Transmission Date: 20181010
  Serious: Yes (Death, Other)
  Sender: FDA-Public Use
  Company Number: AU-009507513-1712AUS006033

PATIENT
  Sex: Female

DRUGS (1)
  1. ETONOGESTREL IMPLANT? UNKNOWN [Suspect]
     Active Substance: ETONOGESTREL
     Indication: CONTRACEPTION
     Dosage: 1 IMPLANT, UNK
     Route: 059

REACTIONS (3)
  - Death [Fatal]
  - Product leakage [Fatal]
  - Complication of device insertion [Fatal]
